FAERS Safety Report 4718008-5 (Version None)
Quarter: 2005Q3

REPORT INFORMATION
  Report Type: 
  Country: None (occurrence: None)
  Receive Date: 20050718
  Receipt Date: 20050310
  Transmission Date: 20060218
  Serious: No
  Sender: FDA-Public Use
  Company Number: 2005000526

PATIENT
  Age: 82 Year
  Sex: Female
  Weight: 68.0396 kg

DRUGS (7)
  1. TARCEVA [Suspect]
     Indication: RENAL CELL CARCINOMA STAGE UNSPECIFIED
     Dosage: 150 MG (QD), ORAL
     Route: 048
     Dates: start: 20050211
  2. BEVACIZUMAB [Concomitant]
  3. SYNTHROID [Concomitant]
  4. VASOTEC [Concomitant]
  5. NORVASC [Concomitant]
  6. PRILOSEC [Concomitant]
  7. TORSEMIDE (TORASEMIDE) [Concomitant]

REACTIONS (3)
  - BURNING SENSATION [None]
  - LIP BLISTER [None]
  - RASH [None]
